FAERS Safety Report 5008563-2 (Version None)
Quarter: 2006Q2

REPORT INFORMATION
  Report Type: 
  Country: None (occurrence: None)
  Receive Date: 20060523
  Receipt Date: 20060516
  Transmission Date: 20061013
  Serious: Yes (Hospitalization, Other)
  Sender: FDA-Public Use
  Company Number: PHBS2006FR07183

PATIENT
  Age: 59 Year
  Sex: Female

DRUGS (6)
  1. DIFRAREL [Concomitant]
     Dates: start: 20011101
  2. OCUVITE [Concomitant]
     Dates: start: 20011101
  3. CLIMASTON [Concomitant]
     Dates: start: 20011101
  4. LEVOTHYROX [Concomitant]
     Dates: start: 20020101
  5. TRUSOPT [Concomitant]
     Dates: start: 20050501, end: 20051125
  6. CARTEOLOL HCL [Suspect]
     Dates: end: 20051104

REACTIONS (13)
  - ALVEOLITIS [None]
  - ANTINUCLEAR ANTIBODY POSITIVE [None]
  - COUGH [None]
  - DEAFNESS [None]
  - DRY SKIN [None]
  - DYSPNOEA [None]
  - EYE PAIN [None]
  - INTERSTITIAL LUNG DISEASE [None]
  - OCULAR HYPERTENSION [None]
  - PARAESTHESIA [None]
  - PLEUROPERICARDITIS [None]
  - PYREXIA [None]
  - SYSTEMIC LUPUS ERYTHEMATOSUS [None]
